FAERS Safety Report 5312243-3 (Version None)
Quarter: 2007Q2

REPORT INFORMATION
  Report Type: 
  Country: None (occurrence: None)
  Receive Date: 20070430
  Receipt Date: 20060804
  Transmission Date: 20071010
  Serious: No
  Sender: FDA-Public Use
  Company Number: 2006UW15630

PATIENT
  Age: 68 Year
  Sex: Female
  Weight: 46.3 kg

DRUGS (5)
  1. NEXIUM [Suspect]
     Indication: GASTROOESOPHAGEAL REFLUX DISEASE
     Route: 048
  2. ADVAIR DISKUS 100/50 [Concomitant]
  3. VERAPAMIL EXTENDED-RELEASE [Concomitant]
  4. PREMARIN [Concomitant]
  5. COUMADIN [Concomitant]

REACTIONS (1)
  - HAEMOPTYSIS [None]
